FAERS Safety Report 11822407 (Version 3)
Quarter: 2016Q1

REPORT INFORMATION
  Report Type: Spontaneous
  Country: JP (occurrence: JP)
  Receive Date: 20151210
  Receipt Date: 20160129
  Transmission Date: 20160525
  Serious: Yes (Hospitalization, Other)
  Sender: FDA-Public Use
  Company Number: JP-PFIZER INC-2015416815

PATIENT
  Age: 69 Year
  Sex: Male
  Weight: 67 kg

DRUGS (5)
  1. XALKORI [Suspect]
     Active Substance: CRIZOTINIB
     Indication: LUNG NEOPLASM MALIGNANT
     Dosage: 250 MG, 2X/DAY
     Route: 048
     Dates: start: 20151106
  2. AFINITOR [Suspect]
     Active Substance: EVEROLIMUS
     Indication: RENAL CANCER
  3. INLYTA [Suspect]
     Active Substance: AXITINIB
     Indication: RENAL CANCER
  4. AFINITOR [Suspect]
     Active Substance: EVEROLIMUS
     Indication: LUNG ADENOCARCINOMA
     Dosage: 10 MG, 1X/DAY
     Route: 048
     Dates: start: 20150812, end: 20151014
  5. INLYTA [Suspect]
     Active Substance: AXITINIB
     Indication: LUNG ADENOCARCINOMA
     Dosage: 5 MG, 2X/DAY
     Route: 048
     Dates: start: 20150518, end: 20150811

REACTIONS (1)
  - Renal impairment [Recovered/Resolved]

NARRATIVE: CASE EVENT DATE: 20151124
